FAERS Safety Report 20061259 (Version 1)
Quarter: 2021Q4

REPORT INFORMATION
  Report Type: Spontaneous
  Country: US (occurrence: US)
  Receive Date: 20211112
  Receipt Date: 20211112
  Transmission Date: 20220303
  Serious: Yes (Death, Hospitalization, Other)
  Sender: FDA-Public Use
  Company Number: US-SUN PHARMACEUTICAL INDUSTRIES LTD-2021R1-305971

PATIENT
  Sex: Female
  Weight: 54 kg

DRUGS (1)
  1. EPOPROSTENOL [Suspect]
     Active Substance: EPOPROSTENOL
     Indication: Pulmonary arterial hypertension
     Dosage: 38 NG/KG/MIN CONTINUOUS
     Route: 042
     Dates: start: 20210716

REACTIONS (3)
  - Right ventricular failure [Fatal]
  - Dyspnoea [Unknown]
  - Nausea [Unknown]
